FAERS Safety Report 20658626 (Version 1)
Quarter: 2022Q1

REPORT INFORMATION
  Report Type: Spontaneous
  Country: AT (occurrence: AT)
  Receive Date: 20220331
  Receipt Date: 20220331
  Transmission Date: 20220423
  Serious: Yes (Death, Life-Threatening, Hospitalization, Other)
  Sender: FDA-Public Use
  Company Number: AT-AMGEN-AUTSP2022050895

PATIENT

DRUGS (6)
  1. NEUPOGEN [Suspect]
     Active Substance: FILGRASTIM
     Indication: Prophylaxis
     Dosage: 5 MICROGRAM/KILOGRAM, QD
     Route: 058
  2. DEXAMETHASONE [Concomitant]
     Active Substance: DEXAMETHASONE
     Dosage: 20 MILLIGRAM 12 AND 6 HOURS BEFORE PACLITAXEL
     Route: 048
  3. CIMETIDINE [Concomitant]
     Active Substance: CIMETIDINE
     Dosage: 300 MILLIGRAM 30 MINUTE BEFORE PACLITAXEL
     Route: 042
  4. DIPHENHYDRAMINE [Concomitant]
     Active Substance: DIPHENHYDRAMINE
     Dosage: 50 MILLIGRAM 30 MINUTE BEFORE PACLITAXEL
     Route: 042
  5. TAXOL [Concomitant]
     Active Substance: PACLITAXEL
     Dosage: 160 MILLIGRAM PER SQUARE METER GIVEN 3 HOURS OF INFUSION ON DAY 1
  6. CISPLATIN [Concomitant]
     Active Substance: CISPLATIN
     Dosage: 60 MILLIGRAM PER SQUARE METER GIVEN AS ONE HOUR INFUSION ON DAY 1

REACTIONS (28)
  - Death [Fatal]
  - Leukopenia [Unknown]
  - Neutropenia [Unknown]
  - Febrile neutropenia [Unknown]
  - Skin toxicity [Unknown]
  - Gastric cancer recurrent [Unknown]
  - Myelosuppression [Unknown]
  - Infection [Unknown]
  - Neuropathy peripheral [Unknown]
  - Upper gastrointestinal haemorrhage [Unknown]
  - Renal impairment [Recovered/Resolved]
  - Alopecia [Unknown]
  - Nausea [Recovering/Resolving]
  - Thrombocytopenia [Unknown]
  - Anaemia [Unknown]
  - Vomiting [Recovering/Resolving]
  - Diarrhoea [Unknown]
  - Anaphylactic reaction [Unknown]
  - Stomatitis [Unknown]
  - Fluid retention [Unknown]
  - Hepatic function abnormal [Recovered/Resolved]
  - Nephropathy toxic [Unknown]
  - Nail disorder [Unknown]
  - Performance status decreased [Unknown]
  - Conjunctivitis [Unknown]
  - Haemoglobin decreased [Recovered/Resolved]
  - Asthenia [Unknown]
  - Constipation [Unknown]
